FAERS Safety Report 7736966-1 (Version None)
Quarter: 2011Q3

REPORT INFORMATION
  Report Type: 
  Country: None (occurrence: None)
  Receive Date: 20110908
  Receipt Date: 20110221
  Transmission Date: 20111222
  Serious: Yes (Hospitalization)
  Sender: FDA-Public Use
  Company Number: US-ROCHE-699572

PATIENT
  Sex: Male
  Weight: 74.3 kg

DRUGS (30)
  1. TOCILIZUMAB [Suspect]
     Dosage: ENROLLED IN STUDY WA18062 IN PAST, FORM: INFUSION
     Route: 042
  2. FOSAMAX [Concomitant]
     Dosage: TOTAL DAILY DOSE: 70 MG PER WEEK
     Dates: start: 20030731, end: 20100223
  3. CALCIUM/VITAMIN D [Concomitant]
     Dosage: 600MG/200 IU
     Dates: start: 20040422
  4. SIMVASTATIN [Concomitant]
     Dates: start: 20080129
  5. PREDNISONE [Concomitant]
     Route: 048
     Dates: start: 20100323, end: 20100325
  6. PREDNISONE [Concomitant]
     Dosage: FREQUENCY: DAILY
     Route: 048
     Dates: start: 20100326
  7. ASPIRIN [Concomitant]
     Dates: start: 20100408
  8. TOCILIZUMAB [Suspect]
     Indication: RHEUMATOID ARTHRITIS
     Dosage: FORM: INFUSION, DATE OF LAST DOSE PRIOR TO SAE: 04 FEBRUARY 2010.
     Route: 042
     Dates: start: 20050921, end: 20100205
  9. PLAVIX [Concomitant]
     Dates: start: 20031022
  10. OMEPRAZOLE [Concomitant]
     Dates: start: 20060616
  11. FOLIC ACID [Concomitant]
     Dates: start: 20050726
  12. HYDROCHLOROTHIAZIDE [Concomitant]
     Dates: start: 20031216
  13. ISOSORBIDE MONONITRATE [Concomitant]
     Dates: start: 20031119
  14. LEVOXYL [Concomitant]
     Dates: start: 20051123
  15. ASPIRIN [Concomitant]
     Dates: start: 20060819, end: 20100309
  16. METHOTREXATE [Concomitant]
     Route: 048
     Dates: start: 20080109, end: 20100223
  17. PREDNISONE [Concomitant]
     Route: 048
     Dates: start: 20100224, end: 20100308
  18. PREDNISONE [Concomitant]
     Route: 048
     Dates: start: 20100314, end: 20100316
  19. PREDNISONE [Concomitant]
     Route: 048
     Dates: start: 20100317, end: 20100319
  20. SWINE FLU VACCINE [Concomitant]
     Dosage: DRUG REPORTED AS: H1N1 INFLUENZA VACCINE
     Dates: start: 20100121, end: 20100121
  21. METHOTREXATE [Concomitant]
     Dosage: AS MUCH NEEDED.
     Route: 048
     Dates: start: 20050727
  22. PREDNISONE [Concomitant]
     Route: 048
     Dates: start: 20001102, end: 20100223
  23. POTASSIUM CHLORIDE [Concomitant]
     Dates: start: 20090528
  24. PREDNISONE [Concomitant]
     Route: 048
     Dates: start: 20100320, end: 20100322
  25. TOPROL-XL [Concomitant]
     Dates: start: 20031022
  26. TOCILIZUMAB [Suspect]
     Route: 042
     Dates: start: 20100601
  27. LOVASTATIN [Concomitant]
     Dates: start: 20060210
  28. METFORMIN HCL [Concomitant]
     Dosage: DRUG NAME REPORTED AS METFORMIN HC.
     Dates: start: 20070423
  29. ALBUTEROL SULFATE AUTOHALER [Concomitant]
     Dates: start: 20030920
  30. GLIPIZIDE [Concomitant]
     Dates: start: 20070114, end: 20100331

REACTIONS (3)
  - PROTEUS INFECTION [None]
  - INTRADUCTAL PAPILLARY MUCINOUS NEOPLASM [None]
  - POSTOPERATIVE ILEUS [None]
